FAERS Safety Report 22864897 (Version 7)
Quarter: 2024Q2

REPORT INFORMATION
  Report Type: Report from Study
  Country: US (occurrence: US)
  Receive Date: 20230825
  Receipt Date: 20240527
  Transmission Date: 20240716
  Serious: Yes (Other)
  Sender: FDA-Public Use
  Company Number: US-TAKEDA-2023TUS006959

PATIENT
  Sex: Male

DRUGS (8)
  1. IDURSULFASE [Suspect]
     Active Substance: IDURSULFASE
     Indication: Product used for unknown indication
     Dosage: 17 MILLIGRAM
     Route: 042
  2. IDURSULFASE [Suspect]
     Active Substance: IDURSULFASE
     Dosage: 17 MILLIGRAM
     Route: 042
  3. IDURSULFASE [Suspect]
     Active Substance: IDURSULFASE
     Dosage: 17 MILLIGRAM
     Route: 042
  4. IDURSULFASE [Suspect]
     Active Substance: IDURSULFASE
     Dosage: 17 MILLIGRAM
     Route: 042
  5. IDURSULFASE [Suspect]
     Active Substance: IDURSULFASE
     Dosage: 17 MILLIGRAM, 1/WEEK
     Route: 042
  6. IDURSULFASE [Suspect]
     Active Substance: IDURSULFASE
     Dosage: 17 MILLIGRAM
     Route: 042
  7. IDURSULFASE [Suspect]
     Active Substance: IDURSULFASE
     Dosage: 18 MILLIGRAM
     Route: 042
  8. IDURSULFASE [Suspect]
     Active Substance: IDURSULFASE
     Dosage: 18 MILLIGRAM
     Route: 042

REACTIONS (16)
  - Intellectual disability [Unknown]
  - Pneumonia [Unknown]
  - Toe walking [Unknown]
  - Respiratory tract congestion [Unknown]
  - Heart rate irregular [Unknown]
  - Breath sounds abnormal [Unknown]
  - Chronic sinusitis [Unknown]
  - Obstruction [Recovering/Resolving]
  - Rhinovirus infection [Unknown]
  - Nasal congestion [Unknown]
  - Infusion site pruritus [Unknown]
  - Sinus congestion [Unknown]
  - Upper respiratory tract infection [Not Recovered/Not Resolved]
  - Weight decreased [Unknown]
  - Headache [Unknown]
  - Pruritus [Unknown]
